FAERS Safety Report 4522006-4 (Version None)
Quarter: 2004Q4

REPORT INFORMATION
  Report Type: 
  Country: None (occurrence: None)
  Receive Date: 20041207
  Receipt Date: 20041207
  Transmission Date: 20050328
  Serious: Yes (Hospitalization)
  Sender: FDA-Public Use
  Company Number: None

PATIENT
  Sex: Male

DRUGS (8)
  1. CEFOTETAN 1 GRAM [Suspect]
     Indication: PNEUMONIA
     Dosage: 1 GRAM BID INTRAVENOUS
     Route: 042
     Dates: start: 20040822, end: 20040822
  2. TRAZODONE [Concomitant]
  3. PHENYTOIN [Concomitant]
  4. SERTRALINE HCL [Concomitant]
  5. RABEPRAZOLE SODIUM [Concomitant]
  6. METOPROLOL [Concomitant]
  7. DIGOXIN [Concomitant]
  8. ASPIRIN [Concomitant]

REACTIONS (2)
  - OXYGEN SATURATION DECREASED [None]
  - STRIDOR [None]
